FAERS Safety Report 9491172 (Version 1)
Quarter: 2013Q3

REPORT INFORMATION
  Report Type: Spontaneous
  Country: AT (occurrence: AT)
  Receive Date: 20130830
  Receipt Date: 20130830
  Transmission Date: 20140515
  Serious: Yes (Hospitalization, Other)
  Sender: FDA-Public Use
  Company Number: AT-TEVA-429360USA

PATIENT
  Age: 72 Year
  Sex: Female

DRUGS (4)
  1. BENDAMUSTINE [Suspect]
     Indication: LYMPHOMA
     Dosage: 90MG/M2, FIRST CYCLE
     Route: 042
     Dates: start: 20130611
  2. BENDAMUSTINE [Suspect]
     Dosage: 90 MG/M2, SECOND CYCLE
     Route: 042
     Dates: start: 20130709
  3. RITUXIMAB [Suspect]
     Indication: LYMPHOMA
     Dosage: 375 MG/M2, FIRST CYCLE
     Route: 058
     Dates: start: 20130611
  4. RITUXIMAB [Suspect]
     Dosage: 375 MG/M2, SECOND CYCLE
     Route: 058
     Dates: start: 20130709

REACTIONS (2)
  - Aortic valve stenosis [Unknown]
  - Oedema peripheral [Unknown]
